FAERS Safety Report 7516773-5 (Version None)
Quarter: 2011Q2

REPORT INFORMATION
  Report Type: 
  Country: None (occurrence: None)
  Receive Date: 20110601
  Receipt Date: 20110526
  Transmission Date: 20111010
  Serious: Yes (Death)
  Sender: FDA-Public Use
  Company Number: PHHY2011GB46425

PATIENT
  Age: 36 Year
  Sex: Female

DRUGS (5)
  1. METHADONE HCL [Suspect]
  2. DIAZEPAM [Concomitant]
  3. NITRAZEPAM [Concomitant]
  4. DMD [Concomitant]
  5. DIHYDROCODEINE BITARTRATE INJ [Concomitant]

REACTIONS (1)
  - TOXICITY TO VARIOUS AGENTS [None]
